FAERS Safety Report 6283161-1 (Version None)
Quarter: 2009Q3

REPORT INFORMATION
  Report Type: 
  Country: None (occurrence: None)
  Receive Date: 20090724
  Receipt Date: 20090717
  Transmission Date: 20100115
  Serious: Yes (Other)
  Sender: FDA-Public Use
  Company Number: B0580794A

PATIENT
  Sex: Male

DRUGS (7)
  1. VALTREX [Suspect]
     Indication: HERPES ZOSTER
     Dosage: 250MG PER DAY
     Route: 048
     Dates: start: 20090615, end: 20090621
  2. UNICON [Concomitant]
     Dosage: 800MG PER DAY
     Route: 048
  3. TANATRIL [Concomitant]
     Dosage: 2.5MG PER DAY
     Route: 048
  4. TANKARU [Concomitant]
     Dosage: 13500MG PER DAY
     Route: 048
  5. DIOVAN [Concomitant]
     Dosage: 40MG PER DAY
     Route: 048
  6. ASPIRIN [Concomitant]
     Dosage: 100MG PER DAY
     Route: 048
  7. HOKUNALIN [Concomitant]
     Route: 062

REACTIONS (6)
  - ATAXIA [None]
  - GAIT DISTURBANCE [None]
  - HEMIPLEGIA [None]
  - MONOPLEGIA [None]
  - MUSCULAR WEAKNESS [None]
  - PARALYSIS [None]
